FAERS Safety Report 9977689 (Version 1)
Quarter: 2014Q1

REPORT INFORMATION
  Report Type: Report from Study
  Country: US (occurrence: US)
  Receive Date: 20140306
  Receipt Date: 20140306
  Transmission Date: 20141002
  Serious: No
  Sender: FDA-Public Use
  Company Number: US-ABBVIE-13P-163-1161499-00

PATIENT
  Age: 62 Year
  Sex: Female
  Weight: 57.66 kg

DRUGS (18)
  1. HUMIRA [Suspect]
     Indication: RHEUMATOID ARTHRITIS
     Route: 058
     Dates: start: 20130821, end: 20131022
  2. PLAQUENIL [Concomitant]
     Indication: INFECTION PROPHYLAXIS
  3. METHOTREXATE [Concomitant]
     Indication: RHEUMATOID ARTHRITIS
     Dosage: 4 - 2.5 MG TABS PER WEEK
  4. FOLIC ACID [Concomitant]
     Indication: VITAMIN SUPPLEMENTATION
  5. RESTASIS [Concomitant]
     Indication: DRY EYE
  6. LEVOTHYROXINE SODIUM [Concomitant]
     Indication: HYPOTHYROIDISM
  7. IRON [Concomitant]
     Indication: IRON DEFICIENCY
  8. CALCIUM [Concomitant]
     Indication: VITAMIN SUPPLEMENTATION
  9. IRBESARTAN AND HYDROCHLOROTHIAZIDE [Concomitant]
     Indication: HYPERTENSION
     Dosage: 300/12.5
  10. PRAVASTATIN [Concomitant]
     Indication: BLOOD CHOLESTEROL INCREASED
  11. MEDROXYPROGESTERONE ACETATE [Concomitant]
     Indication: HORMONE REPLACEMENT THERAPY
  12. ESTRADIOL [Concomitant]
     Indication: HORMONE REPLACEMENT THERAPY
  13. FLUOXETINE [Concomitant]
     Indication: DEPRESSION
  14. VITAMIN D3 [Concomitant]
     Indication: VITAMIN D DEFICIENCY
  15. POTASSIUM CHLORIDE [Concomitant]
     Indication: HYPERTENSION
  16. CO Q 10 [Concomitant]
     Indication: PRODUCT USED FOR UNKNOWN INDICATION
  17. MULTIVITAMINS [Concomitant]
     Indication: VITAMIN SUPPLEMENTATION
  18. ATENOLOL [Concomitant]
     Indication: HYPERTENSION

REACTIONS (5)
  - Rash papular [Recovering/Resolving]
  - Coccidioidomycosis [Unknown]
  - Paraesthesia [Not Recovered/Not Resolved]
  - Rash pustular [Recovered/Resolved]
  - Staphylococcal skin infection [Unknown]
